FAERS Safety Report 24380653 (Version 4)
Quarter: 2024Q4

REPORT INFORMATION
  Report Type: Spontaneous
  Country: PL (occurrence: PL)
  Receive Date: 20240930
  Receipt Date: 20241030
  Transmission Date: 20250115
  Serious: Yes (Disabling, Other)
  Sender: KYOWA
  Company Number: PL-KYOWAKIRIN-2024KK022365

PATIENT

DRUGS (6)
  1. POTELIGEO [Suspect]
     Active Substance: MOGAMULIZUMAB-KPKC
     Indication: Cutaneous T-cell lymphoma
     Dosage: 80 MG, 1X/WEEK (28D-4 COURSES OF MOGAMULIZUMAB ADMINISTERED)
     Route: 042
     Dates: start: 20240829, end: 20240926
  2. POTELIGEO [Suspect]
     Active Substance: MOGAMULIZUMAB-KPKC
     Dosage: UNK (4 DOSES)
     Route: 065
  3. PLAVIX [Concomitant]
     Active Substance: CLOPIDOGREL BISULFATE
     Indication: Product used for unknown indication
     Dosage: UNK
     Route: 065
  4. DOXEPIN [Concomitant]
     Active Substance: DOXEPIN
     Indication: Product used for unknown indication
     Dosage: UNK
     Route: 065
  5. LORAZEPAM [Concomitant]
     Active Substance: LORAZEPAM
     Indication: Product used for unknown indication
     Dosage: UNK
     Route: 065
  6. RAMIPRIL [Concomitant]
     Active Substance: RAMIPRIL
     Indication: Product used for unknown indication
     Dosage: 2.5 MG
     Route: 065

REACTIONS (2)
  - Pruritus [Recovering/Resolving]
  - Skin lesion [Not Recovered/Not Resolved]

NARRATIVE: CASE EVENT DATE: 20240905
